FAERS Safety Report 5708604-0 (Version None)
Quarter: 2008Q2

REPORT INFORMATION
  Report Type: 
  Country: None (occurrence: None)
  Receive Date: 20080417
  Receipt Date: 20080409
  Transmission Date: 20081010
  Serious: Yes (Hospitalization, Congenital Anomaly, Other)
  Sender: FDA-Public Use
  Company Number: FR-WYE-G01374208

PATIENT
  Sex: Male

DRUGS (3)
  1. EFFEXOR [Suspect]
     Indication: DEPRESSION
     Route: 064
     Dates: start: 20060401, end: 20060801
  2. TUBERCULIN PPD [Suspect]
     Dosage: UNKNOWN
     Route: 064
     Dates: start: 20060701, end: 20060701
  3. LUTENYL [Suspect]
     Indication: MASTITIS
     Dosage: UNKNOWN
     Route: 064
     Dates: start: 20060701, end: 20060801

REACTIONS (5)
  - AORTA HYPOPLASIA [None]
  - DRUG EXPOSURE DURING PREGNANCY [None]
  - PERSISTENT LEFT SUPERIOR VENA CAVA [None]
  - PREMATURE BABY [None]
  - RADIATION EXPOSURE DURING PREGNANCY [None]
